FAERS Safety Report 22076054 (Version 1)
Quarter: 2023Q1

REPORT INFORMATION
  Report Type: Report from Study
  Country: BR (occurrence: BR)
  Receive Date: 20230308
  Receipt Date: 20230308
  Transmission Date: 20230417
  Serious: Yes (Other)
  Sender: FDA-Public Use
  Company Number: BR-CELLTRION INC.-2023BR004844

PATIENT

DRUGS (9)
  1. TRUXIMA [Suspect]
     Active Substance: RITUXIMAB-ABBS
     Indication: Systemic lupus erythematosus
     Dosage: 4 AMPOULES EVERY 9 WEEKS
     Route: 042
  2. TRUXIMA [Suspect]
     Active Substance: RITUXIMAB-ABBS
     Indication: Rheumatoid arthritis
     Dosage: 1 SESSION WITH 2 AMPOULES
     Route: 042
  3. TRUXIMA [Suspect]
     Active Substance: RITUXIMAB-ABBS
     Dosage: AFTER 15 DAYS ANOTHER SESSION WITH 2 AMPOULES THEN AFTER 6 MONTHS
     Route: 042
  4. PREDNISOLONE [Concomitant]
     Active Substance: PREDNISOLONE
     Indication: Systemic lupus erythematosus
     Dosage: 1 PILL PER DAY, START: 2021 STOP: ONGOING
     Route: 048
     Dates: start: 2021
  5. NIFEDIPINE [Concomitant]
     Active Substance: NIFEDIPINE
     Dosage: 1 PILL PER DAY, START: 8 MONTHS AGO STOP: ONGOING
     Route: 048
  6. FLUOXETINE HYDROCHLORIDE [Concomitant]
     Active Substance: FLUOXETINE HYDROCHLORIDE
     Indication: Depression
     Dosage: 1 PILL PER DAY, START: 2015 STOP: ONGOING
     Route: 048
     Dates: start: 2015
  7. LOSARTAN [Concomitant]
     Active Substance: LOSARTAN
     Indication: Hypertension
     Dosage: 2 PILLS PER DAY, START: 2015 STOP: ONGOING
     Route: 048
     Dates: start: 2015
  8. SILDENAFIL [Concomitant]
     Active Substance: SILDENAFIL
     Dosage: 1 PILL PER DAY, START: 8 MONTHS AGO STOP: ONGOING
     Route: 048
  9. CLONAZEPAM [Concomitant]
     Active Substance: CLONAZEPAM
     Indication: Depression
     Dosage: 1 PILL PER DAY, START: 2015 STOP: ONGOING
     Route: 048
     Dates: start: 2015

REACTIONS (2)
  - Systemic lupus erythematosus [Unknown]
  - Off label use [Unknown]
